FAERS Safety Report 16006454 (Version 3)
Quarter: 2019Q2

REPORT INFORMATION
  Report Type: Spontaneous
  Country: US (occurrence: US)
  Receive Date: 20190225
  Receipt Date: 20190613
  Transmission Date: 20190711
  Serious: No
  Sender: FDA-Public Use
  Company Number: US-PFIZER INC-2019074090

PATIENT
  Age: 67 Year
  Sex: Female

DRUGS (2)
  1. IBRANCE [Suspect]
     Active Substance: PALBOCICLIB
     Dosage: 100 MG, CYCLIC (21D THEN 7D OFF)
     Route: 048
     Dates: start: 2019, end: 2019
  2. IBRANCE [Suspect]
     Active Substance: PALBOCICLIB
     Dosage: 125 MG, CYCLIC (EVERY DAY FOR 21 DAYS, 7 DAYS OFF)
     Dates: start: 2019, end: 2019

REACTIONS (6)
  - Acne [Unknown]
  - Vomiting [Unknown]
  - Neoplasm progression [Unknown]
  - Rash papular [Unknown]
  - Pruritus generalised [Unknown]
  - Rash [Unknown]

NARRATIVE: CASE EVENT DATE: 2019
